FAERS Safety Report 9132660 (Version 1)
Quarter: 2013Q1

REPORT INFORMATION
  Report Type: Spontaneous
  Country: IN (occurrence: IN)
  Receive Date: 20130301
  Receipt Date: 20130301
  Transmission Date: 20140127
  Serious: Yes (Other)
  Sender: FDA-Public Use
  Company Number: IN-ABBOTT-13X-078-1057027-00

PATIENT
  Sex: Male

DRUGS (1)
  1. VALPRARIN CHRONO [Suspect]
     Indication: PRODUCT USED FOR UNKNOWN INDICATION
     Route: 048

REACTIONS (2)
  - Convulsion [Unknown]
  - Medication residue present [Unknown]
